FAERS Safety Report 9359520 (Version 1)
Quarter: 2013Q2

REPORT INFORMATION
  Report Type: Spontaneous
  Country: US (occurrence: US)
  Receive Date: 20130620
  Receipt Date: 20130620
  Transmission Date: 20140414
  Serious: No
  Sender: FDA-Public Use
  Company Number: US-US-EMD SERONO, INC.-7144276

PATIENT
  Age: 52 Year
  Sex: Male

DRUGS (2)
  1. REBIF [Suspect]
     Indication: PRODUCT USED FOR UNKNOWN INDICATION
     Route: 058
     Dates: start: 20040118
  2. REBIF [Suspect]
     Route: 058
     Dates: start: 201206

REACTIONS (4)
  - Restless legs syndrome [Unknown]
  - Hypertension [Not Recovered/Not Resolved]
  - White blood cell count decreased [Unknown]
  - Expired drug administered [Unknown]
